FAERS Safety Report 8500624-6 (Version None)
Quarter: 2012Q3

REPORT INFORMATION
  Report Type: 
  Country: None (occurrence: None)
  Receive Date: 20120710
  Receipt Date: 20120709
  Transmission Date: 20120928
  Serious: Yes (Other)
  Sender: FDA-Public Use
  Company Number: US-TEVA-347201USA

PATIENT
  Sex: Female

DRUGS (4)
  1. TAMOXIFEN CITRATE [Suspect]
     Route: 048
     Dates: start: 20110101
  2. TAMOXIFEN CITRATE [Interacting]
     Dates: end: 20110101
  3. EFFEXOR [Concomitant]
  4. ZOLOFT [Interacting]
     Indication: DEPRESSION

REACTIONS (4)
  - DRUG INTERACTION [None]
  - THINKING ABNORMAL [None]
  - IRRITABILITY [None]
  - SUICIDE ATTEMPT [None]
